FAERS Safety Report 24939596 (Version 2)
Quarter: 2025Q3

REPORT INFORMATION
  Report Type: Spontaneous
  Country: US (occurrence: US)
  Receive Date: 20250207
  Receipt Date: 20250810
  Transmission Date: 20251020
  Serious: Yes (Other)
  Sender: ALEXION PHARMACEUTICALS
  Company Number: US-AstraZeneca-CH-00800731A

PATIENT
  Sex: Female

DRUGS (1)
  1. CALQUENCE [Suspect]
     Active Substance: ACALABRUTINIB

REACTIONS (9)
  - Product dose omission issue [Unknown]
  - Skeletal injury [Recovering/Resolving]
  - Chronic lymphocytic leukaemia [Unknown]
  - Product use issue [Unknown]
  - Musculoskeletal discomfort [Unknown]
  - Blister [Unknown]
  - Pneumonia [Unknown]
  - Neoplasm malignant [Unknown]
  - Cough [Unknown]
